FAERS Safety Report 4618050-9 (Version None)
Quarter: 2005Q1

REPORT INFORMATION
  Report Type: 
  Country: None (occurrence: None)
  Receive Date: 20050324
  Receipt Date: 20050314
  Transmission Date: 20050727
  Serious: Yes (Hospitalization)
  Sender: FDA-Public Use
  Company Number: US-SANOFI-SYNTHELABO-F03200500037

PATIENT
  Sex: Male

DRUGS (3)
  1. UROXATRAL [Suspect]
     Indication: BENIGN PROSTATIC HYPERPLASIA
     Route: 048
     Dates: end: 20050305
  2. CIPROFLOXACIN HCL [Concomitant]
     Dosage: UNK
     Route: 065
  3. TEMAZEPAM [Concomitant]
     Dosage: UNK
     Route: 065

REACTIONS (4)
  - BLADDER SPASM [None]
  - CATHETER SITE HAEMORRHAGE [None]
  - HAEMATURIA [None]
  - SYNCOPE [None]
